FAERS Safety Report 5367738-3 (Version None)
Quarter: 2007Q2

REPORT INFORMATION
  Report Type: 
  Country: None (occurrence: None)
  Receive Date: 20070622
  Receipt Date: 20070319
  Transmission Date: 20071010
  Serious: No
  Sender: FDA-Public Use
  Company Number: US-ASTRAZENECA-2007UW05310

PATIENT
  Age: 75 Year
  Sex: Female

DRUGS (8)
  1. PULMICORT [Suspect]
     Indication: DYSPNOEA
     Dosage: .5 MG/ML QID
     Route: 055
  2. DUONEB [Concomitant]
  3. SINGULAIR [Concomitant]
  4. SYNTHROID [Concomitant]
  5. PROTONIX [Concomitant]
  6. TEMAZEPAM [Concomitant]
  7. LIPITOR [Concomitant]
  8. HISTINEX HC [Concomitant]

REACTIONS (2)
  - BLOOD PRESSURE INCREASED [None]
  - DRUG INEFFECTIVE [None]
